FAERS Safety Report 17114486 (Version 1)
Quarter: 2020Q3

REPORT INFORMATION
  Report Type: Spontaneous
  Country: GB (occurrence: GB)
  Receive Date: 20191205
  Receipt Date: 20191205
  Transmission Date: 20201104
  Serious: Yes (Other)
  Sender: FDA-Public Use
  Company Number: NVSC2019GB055072

PATIENT
  Age: 39 Year
  Sex: Male

DRUGS (1)
  1. FINGOLIMOD. [Suspect]
     Active Substance: FINGOLIMOD
     Indication: PRODUCT USED FOR UNKNOWN INDICATION
     Dosage: UNK
     Route: 065
     Dates: start: 2013

REACTIONS (2)
  - Cognitive disorder [Unknown]
  - Paraparesis [Unknown]
